FAERS Safety Report 7636552-8 (Version None)
Quarter: 2011Q3

REPORT INFORMATION
  Report Type: 
  Country: None (occurrence: None)
  Receive Date: 20110719
  Receipt Date: 20110704
  Transmission Date: 20111222
  Serious: Yes (Other)
  Sender: FDA-Public Use
  Company Number: JHP201100297

PATIENT
  Age: 3 Year
  Sex: Male

DRUGS (2)
  1. DANTRIUM [Suspect]
     Indication: SCOLIOSIS
  2. DANTRIUM [Suspect]
     Indication: MUSCLE TIGHTNESS

REACTIONS (1)
  - PNEUMONIA ASPIRATION [None]
